FAERS Safety Report 5380407-9 (Version None)
Quarter: 2007Q3

REPORT INFORMATION
  Report Type: 
  Country: None (occurrence: None)
  Receive Date: 20070706
  Receipt Date: 20070525
  Transmission Date: 20080115
  Serious: No
  Sender: FDA-Public Use
  Company Number: A0653023A

PATIENT
  Age: 57 Year
  Sex: Female

DRUGS (8)
  1. TYKERB [Suspect]
     Indication: BREAST CANCER
     Dosage: 4TAB PER DAY
     Route: 048
     Dates: start: 20070508
  2. TAXOTERE [Concomitant]
  3. ZOMETA [Concomitant]
  4. CELEXA [Concomitant]
  5. MS CONTIN [Concomitant]
  6. PHENERGAN HCL [Concomitant]
  7. FLAGYL [Concomitant]
  8. POTASSIUM ACETATE [Concomitant]

REACTIONS (4)
  - ANOREXIA [None]
  - DIARRHOEA [None]
  - FATIGUE [None]
  - VOMITING [None]
